FAERS Safety Report 8387731 (Version 4)
Quarter: 2017Q2

REPORT INFORMATION
  Report Type: Spontaneous
  Country: US (occurrence: US)
  Receive Date: 20120203
  Receipt Date: 20170629
  Transmission Date: 20170830
  Serious: No
  Sender: FDA-Public Use
  Company Number: US-PFIZER INC-2012026758

PATIENT
  Age: 50 Year
  Sex: Female
  Weight: 58.96 kg

DRUGS (6)
  1. ESTRING [Interacting]
     Active Substance: ESTRADIOL
     Indication: NEOPLASM MALIGNANT
  2. ESTRING [Suspect]
     Active Substance: ESTRADIOL
     Indication: HORMONE REPLACEMENT THERAPY
     Dosage: 2 MG, ONCE IN 3 MONTHS
     Route: 067
     Dates: start: 20120112
  3. ESTRING [Interacting]
     Active Substance: ESTRADIOL
     Indication: HYSTERECTOMY
     Dosage: 2 MG, UNK (ONE EVERY THREE MONTHS)
     Dates: start: 20170503, end: 20170621
  4. LEVOXYL [Interacting]
     Active Substance: LEVOTHYROXINE SODIUM
     Indication: THYROID DISORDER
     Dosage: UNK
  5. METFORMIN [Concomitant]
     Active Substance: METFORMIN HYDROCHLORIDE
     Indication: DIABETES MELLITUS
     Dosage: 1000 MG, 2X/DAY
     Dates: start: 2016
  6. LEVOTHYROXINE. [Concomitant]
     Active Substance: LEVOTHYROXINE
     Indication: THYROID DISORDER
     Dosage: 88 UG, 1X/DAY

REACTIONS (10)
  - Drug interaction [Unknown]
  - Pruritus [Unknown]
  - Back pain [Unknown]
  - Headache [Unknown]
  - Burning sensation [Unknown]
  - Cough [Unknown]
  - Hot flush [Unknown]
  - Discomfort [Unknown]
  - Erythema nodosum [Recovered/Resolved]
  - Drug ineffective [Recovered/Resolved]

NARRATIVE: CASE EVENT DATE: 20120112
